FAERS Safety Report 16116258 (Version 1)
Quarter: 2019Q1

REPORT INFORMATION
  Report Type: Spontaneous
  Country: US (occurrence: US)
  Receive Date: 20190326
  Receipt Date: 20190326
  Transmission Date: 20190418
  Serious: No
  Sender: FDA-Public Use
  Company Number: US-GLENMARK PHARMACEUTICALS-2019GMK039777

PATIENT

DRUGS (3)
  1. ESTRADIOL VAGINAL INSERTS USP [Suspect]
     Active Substance: ESTRADIOL
     Indication: VULVOVAGINAL DRYNESS
     Dosage: 10 MCG, UNK (TWICE A WEEK)
     Route: 065
  2. OMEPRAZOLE. [Concomitant]
     Active Substance: OMEPRAZOLE
     Indication: DYSPEPSIA
     Dosage: UNK
     Route: 065
  3. ESTRADIOL VAGINAL INSERTS USP [Suspect]
     Active Substance: ESTRADIOL
     Indication: VULVOVAGINAL PAIN

REACTIONS (3)
  - Product substitution issue [Unknown]
  - Vulvovaginal pruritus [Not Recovered/Not Resolved]
  - Pruritus [Not Recovered/Not Resolved]
